FAERS Safety Report 9365409 (Version 4)
Quarter: 2013Q4

REPORT INFORMATION
  Report Type: Report from Study
  Country: CA (occurrence: CA)
  Receive Date: 20130625
  Receipt Date: 20131113
  Transmission Date: 20140711
  Serious: Yes (Other)
  Sender: FDA-Public Use
  Company Number: CA-ROCHE-1236145

PATIENT
  Age: 57 Year
  Sex: Female
  Weight: 77.5 kg

DRUGS (5)
  1. PERJETA [Suspect]
     Indication: BREAST CANCER METASTATIC
     Route: 042
     Dates: start: 20130604, end: 20130604
  2. PERJETA [Suspect]
     Route: 042
     Dates: start: 20130625
  3. HERCEPTIN [Suspect]
     Indication: BREAST CANCER METASTATIC
     Route: 042
     Dates: start: 20130605
  4. TAXOTERE [Suspect]
     Indication: BREAST CANCER
     Route: 065
     Dates: start: 20130605
  5. PEGFILGRASTIM [Concomitant]
     Indication: BREAST CANCER METASTATIC
     Route: 058

REACTIONS (5)
  - Diarrhoea [Not Recovered/Not Resolved]
  - Dehydration [Recovering/Resolving]
  - Rectal haemorrhage [Recovering/Resolving]
  - Neuropathy peripheral [Not Recovered/Not Resolved]
  - Nausea [Unknown]
